FAERS Safety Report 24765746 (Version 1)
Quarter: 2024Q4

REPORT INFORMATION
  Report Type: Spontaneous
  Country: ES (occurrence: ES)
  Receive Date: 20241223
  Receipt Date: 20241223
  Transmission Date: 20250115
  Serious: Yes (Life-Threatening, Hospitalization)
  Sender: GE HEALTHCARE
  Company Number: ES-GE HEALTHCARE-2024CSU014678

PATIENT
  Age: 81 Year
  Sex: Female

DRUGS (2)
  1. VISIPAQUE [Suspect]
     Active Substance: IODIXANOL
     Indication: Computerised tomogram abdomen
     Dosage: UNK, TOTAL
     Route: 065
     Dates: start: 20240920, end: 20240920
  2. VISIPAQUE [Suspect]
     Active Substance: IODIXANOL
     Indication: Computerised tomogram thorax

REACTIONS (8)
  - Use of accessory respiratory muscles [Recovered/Resolved]
  - Haemodynamic instability [Recovering/Resolving]
  - Miosis [Recovering/Resolving]
  - Wheezing [Recovering/Resolving]
  - Respiratory distress [Recovered/Resolved]
  - Hypoxia [Recovered/Resolved]
  - Cyanosis [Recovered/Resolved]
  - Unresponsive to stimuli [Recovering/Resolving]

NARRATIVE: CASE EVENT DATE: 20240920
